FAERS Safety Report 4951027-2 (Version None)
Quarter: 2006Q1

REPORT INFORMATION
  Report Type: 
  Country: None (occurrence: None)
  Receive Date: 20060130
  Receipt Date: 20050407
  Transmission Date: 20060701
  Serious: Yes (Other)
  Sender: FDA-Public Use
  Company Number: 141796USA

PATIENT
  Age: 44 Year
  Sex: Female

DRUGS (7)
  1. COPAXONE [Suspect]
     Indication: MULTIPLE SCLEROSIS
     Dosage: 20 MILLIGRAM QD SUBCUTANEOUS
     Route: 058
     Dates: start: 20020101
  2. AMITRIPTYLINE HCL [Concomitant]
  3. CITALOPRAM [Concomitant]
  4. HYDROXYZINE [Concomitant]
  5. TERAZOSIN HCL [Concomitant]
  6. DESOGEN^CIBA-GEIGY^ [Concomitant]
  7. STOOL SOFTENER [Concomitant]

REACTIONS (1)
  - BREAST CANCER [None]
